FAERS Safety Report 4584515-1 (Version None)
Quarter: 2005Q1

REPORT INFORMATION
  Report Type: 
  Country: None (occurrence: None)
  Receive Date: 20050125
  Receipt Date: 20041105
  Transmission Date: 20050727
  Serious: No
  Sender: FDA-Public Use
  Company Number: USA041183354

PATIENT
  Age: 61 Year
  Sex: Female
  Weight: 59 kg

DRUGS (10)
  1. FORTEO [Suspect]
     Indication: COMPRESSION FRACTURE
     Dosage: 20 UG DAY
     Dates: start: 20040824
  2. ZOLOFT [Concomitant]
  3. STELAZINE [Concomitant]
  4. XANAX (ALPRAZOLAM DUM) [Concomitant]
  5. SYNTHROID [Concomitant]
  6. VIVACTIL [Concomitant]
  7. VITAMINS NOS [Concomitant]
  8. WELLBUTRIN [Concomitant]
  9. ZOCOR (SIMVASTATIN RATIOPHARM) [Concomitant]
  10. PROTONIX [Concomitant]

REACTIONS (2)
  - ARTHRALGIA [None]
  - PAIN IN EXTREMITY [None]
